FAERS Safety Report 4304528-4 (Version None)
Quarter: 2004Q1

REPORT INFORMATION
  Report Type: 
  Country: None (occurrence: None)
  Receive Date: 20040224
  Receipt Date: 20040213
  Transmission Date: 20041129
  Serious: Yes (Hospitalization)
  Sender: FDA-Public Use
  Company Number: 02P-056-0205056-00

PATIENT
  Age: 45 Year
  Sex: Female

DRUGS (9)
  1. TRICOR [Suspect]
     Indication: HYPERCHOLESTEROLAEMIA
     Dosage: 200 MG, 1 IN 1 D, PER ORAL
     Route: 048
     Dates: start: 19950101
  2. ACENOCOUMAROL [Concomitant]
  3. OMEPRAZOLE [Concomitant]
  4. HYDROCORTISONE HYDROGEN SUCCINATE [Concomitant]
  5. ETIDRONATE SODIUM [Concomitant]
  6. LEKOVIT CA [Concomitant]
  7. PRAZEPAM [Concomitant]
  8. TRAMADOL HYDROCHLORIDE [Concomitant]
  9. INTERFERON BETA [Concomitant]

REACTIONS (3)
  - DRUG INEFFECTIVE [None]
  - GOITRE [None]
  - HYPERTHYROIDISM [None]
